FAERS Safety Report 4622210-0 (Version None)
Quarter: 2005Q1

REPORT INFORMATION
  Report Type: 
  Country: None (occurrence: None)
  Receive Date: 20050322
  Receipt Date: 20050322
  Transmission Date: 20050727
  Serious: Yes (Death)
  Sender: FDA-Public Use
  Company Number: None

PATIENT
  Sex: Female
  Weight: 51.4 kg

DRUGS (4)
  1. ERBITUX [Suspect]
     Dosage: 400 MG/M2 LOADING DOSE FOLLOWED BY
     Dates: start: 20041209
  2. ERBITUX [Suspect]
     Dosage: 250 MG/M2 WEEKLY WEEKS 1-17
  3. CARBOPLATIN [Suspect]
     Dosage: AUC 2 WEEKLY DURING XRT, THEN AUC6 X2 Q 3WEEKS CONSOLIDATION
  4. TAXOL [Suspect]
     Dosage: 45 MG/M2 WEEKLY DURING XRT, THEN 200MG/M2 X 2 Q3WEEKS CONSOLIDATION

REACTIONS (2)
  - NEUTROPENIA [None]
  - RASH [None]
